FAERS Safety Report 9240717 (Version 1)
Quarter: 2013Q1

REPORT INFORMATION
  Report Type: Spontaneous
  Country: US (occurrence: None)
  Receive Date: 20121120
  Receipt Date: 20121120
  Transmission Date: 20140127
  Serious: No
  Sender: FDA-Public Use
  Company Number: 1000038876

PATIENT
  Sex: 0

DRUGS (2)
  1. VIIBRYD [Suspect]
  2. GEODON [Suspect]

REACTIONS (3)
  - Palpitations [None]
  - Electrocardiogram [None]
  - Electrocardiogram change [None]
